FAERS Safety Report 7035129-5 (Version None)
Quarter: 2010Q4

REPORT INFORMATION
  Report Type: 
  Country: None (occurrence: None)
  Receive Date: 20101008
  Receipt Date: 20101004
  Transmission Date: 20110411
  Serious: Yes (Life-Threatening, Hospitalization, Other)
  Sender: FDA-Public Use
  Company Number: PHFR2010GB01225

PATIENT
  Sex: Male

DRUGS (12)
  1. CLOZARIL [Suspect]
     Indication: SCHIZOPHRENIA
     Dosage: UNK
     Route: 048
     Dates: start: 20010701
  2. CLOZARIL [Suspect]
     Indication: PSYCHOTIC DISORDER
     Dosage: 350MG DAILY
     Route: 048
  3. CLOZARIL [Suspect]
     Dosage: 325MG DAILY
     Route: 048
  4. CLOZARIL [Suspect]
     Dosage: UNK
     Route: 048
     Dates: start: 19901121
  5. WARFARIN SODIUM [Concomitant]
  6. VALPROATE SODIUM [Concomitant]
     Indication: PROPHYLAXIS
     Dosage: 1000MG
     Route: 048
  7. CIPRALAN [Concomitant]
     Indication: DEPRESSION
     Dosage: 10MG DAILY
     Route: 048
  8. ACETYLSALICYLIC ACID SRT [Concomitant]
     Indication: MYOCARDIAL ISCHAEMIA
     Dosage: 75MG DAILY
     Route: 048
  9. BISOPROLOL [Concomitant]
     Dosage: 1.25MG DAILY
     Route: 048
  10. EZETIMIBE [Concomitant]
     Dosage: 10MG DAILY
     Route: 048
  11. OMEPRAZOLE [Concomitant]
     Indication: PEPTIC ULCER
     Dosage: 40MG DAILY
     Route: 048
  12. DIAZEPAM [Concomitant]
     Indication: ANXIETY
     Dosage: 4MG DAILY
     Route: 048

REACTIONS (8)
  - ANTIPSYCHOTIC DRUG LEVEL INCREASED [None]
  - AORTIC ANEURYSM [None]
  - AORTIC VALVE REPLACEMENT [None]
  - CARDIAC DISORDER [None]
  - EOSINOPHIL COUNT DECREASED [None]
  - MYOCARDIAL ISCHAEMIA [None]
  - NEUTROPHIL COUNT DECREASED [None]
  - WHITE BLOOD CELL COUNT DECREASED [None]
